FAERS Safety Report 14476597 (Version 1)
Quarter: 2018Q1

REPORT INFORMATION
  Report Type: Spontaneous
  Country: US (occurrence: US)
  Receive Date: 20180201
  Receipt Date: 20180201
  Transmission Date: 20180509
  Serious: No
  Sender: FDA-Public Use
  Company Number: US-SA-2017SA238061

PATIENT
  Age: 71 Year
  Sex: Male

DRUGS (2)
  1. PRALUENT [Suspect]
     Active Substance: ALIROCUMAB
     Route: 058
     Dates: start: 20170515, end: 20171121
  2. ALIROCUMAB PREFILLED PEN [Suspect]
     Active Substance: ALIROCUMAB
     Dates: start: 20170515, end: 20171121

REACTIONS (2)
  - Disorientation [Unknown]
  - Confusional state [Unknown]

NARRATIVE: CASE EVENT DATE: 201705
